FAERS Safety Report 21719910 (Version 1)
Quarter: 2022Q4

REPORT INFORMATION
  Report Type: Other
  Country: US (occurrence: US)
  Receive Date: 20221213
  Receipt Date: 20221213
  Transmission Date: 20230113
  Serious: Yes (Hospitalization, Other)
  Sender: FDA-Public Use
  Company Number: US-HLS-202105541

PATIENT
  Age: 42 Year
  Sex: Male

DRUGS (4)
  1. CLOZAPINE [Suspect]
     Active Substance: CLOZAPINE
     Indication: Psychotic disorder
     Route: 065
  2. OLANZAPINE [Suspect]
     Active Substance: OLANZAPINE
     Indication: Product used for unknown indication
     Route: 065
  3. HALOPERIDOL DECANOATE [Suspect]
     Active Substance: HALOPERIDOL DECANOATE
     Indication: Product used for unknown indication
     Dosage: EVERY 4 WEEKS , INCREASED TO 200MG EVERY FOUR WEEKS.
     Route: 065
  4. HALOPERIDOL [Suspect]
     Active Substance: HALOPERIDOL
     Indication: Product used for unknown indication
     Route: 065

REACTIONS (7)
  - Acute respiratory failure [Unknown]
  - Pancreatitis acute [Unknown]
  - Vomiting [Unknown]
  - Hypertriglyceridaemia [Unknown]
  - Type 1 diabetes mellitus [Unknown]
  - Lactic acidosis [Unknown]
  - Neutropenia [Unknown]
